FAERS Safety Report 16065831 (Version 1)
Quarter: 2019Q1

REPORT INFORMATION
  Report Type: Report from Study
  Country: None (occurrence: US)
  Receive Date: 20190313
  Receipt Date: 20190313
  Transmission Date: 20190418
  Serious: Yes (Other)
  Sender: FDA-Public Use
  Company Number: US-ABBVIE-19K-163-2697756-00

PATIENT
  Sex: Male

DRUGS (2)
  1. HUMIRA [Suspect]
     Active Substance: ADALIMUMAB
     Indication: PSORIASIS
     Route: 058
  2. HUMIRA [Suspect]
     Active Substance: ADALIMUMAB
     Indication: PSORIATIC ARTHROPATHY

REACTIONS (6)
  - Joint range of motion decreased [Recovering/Resolving]
  - Skin ulcer [Recovered/Resolved]
  - Rotator cuff syndrome [Recovering/Resolving]
  - Pain in extremity [Recovering/Resolving]
  - Grip strength decreased [Recovering/Resolving]
  - Finger deformity [Recovering/Resolving]
